FAERS Safety Report 7485071-0 (Version None)
Quarter: 2011Q2

REPORT INFORMATION
  Report Type: 
  Country: None (occurrence: None)
  Receive Date: 20110517
  Receipt Date: 20101111
  Transmission Date: 20111010
  Serious: No
  Sender: FDA-Public Use
  Company Number: US-BAYER-2010-005448

PATIENT
  Sex: Female
  Weight: 54 kg

DRUGS (1)
  1. ALEVE (CAPLET) [Suspect]

REACTIONS (2)
  - RASH PAPULAR [None]
  - HYPERSENSITIVITY [None]
